FAERS Safety Report 15980191 (Version 1)
Quarter: 2019Q1

REPORT INFORMATION
  Report Type: Spontaneous
  Country: US (occurrence: US)
  Receive Date: 20190124
  Receipt Date: 20190124
  Transmission Date: 20190418
  Serious: Yes (Other)
  Sender: FDA-Public Use
  Company Number: None

PATIENT
  Age: 78 Year
  Sex: Female
  Weight: 48.99 kg

DRUGS (1)
  1. HIZENTRA [Suspect]
     Active Substance: HUMAN IMMUNOGLOBULIN G
     Indication: PRIMARY IMMUNODEFICIENCY SYNDROME
     Route: 058

REACTIONS (6)
  - Hypoxia [None]
  - Confusional state [None]
  - Cyanosis [None]
  - Sleep apnoea syndrome [None]
  - Pneumonia [None]
  - Peripheral swelling [None]

NARRATIVE: CASE EVENT DATE: 20190116
